FAERS Safety Report 14232204 (Version 2)
Quarter: 2017Q4

REPORT INFORMATION
  Report Type: Spontaneous
  Country: US (occurrence: US)
  Receive Date: 20171128
  Receipt Date: 20171128
  Transmission Date: 20180321
  Serious: Yes (Other)
  Sender: FDA-Public Use
  Company Number: PHHY2017US172472

PATIENT
  Age: 73 Year
  Sex: Female

DRUGS (3)
  1. PAZOPANIB [Interacting]
     Active Substance: PAZOPANIB
     Dosage: 400 MG, QD
     Route: 065
  2. ROSUVASTATIN. [Suspect]
     Active Substance: ROSUVASTATIN
     Indication: HYPERLIPIDAEMIA
     Dosage: 40 MG, QD
     Route: 065
  3. PAZOPANIB [Interacting]
     Active Substance: PAZOPANIB
     Indication: CLEAR CELL RENAL CELL CARCINOMA
     Dosage: 600 MG, QD
     Route: 065

REACTIONS (8)
  - Thrombocytopenia [Unknown]
  - Drug interaction [Unknown]
  - Renal injury [Unknown]
  - Therapy partial responder [Unknown]
  - Blood thyroid stimulating hormone increased [Unknown]
  - Rhabdomyolysis [Unknown]
  - Muscle oedema [Unknown]
  - Hypertensive crisis [Unknown]
